FAERS Safety Report 9777654 (Version 3)
Quarter: 2014Q2

REPORT INFORMATION
  Report Type: Spontaneous
  Country: FR (occurrence: FR)
  Receive Date: 20131223
  Receipt Date: 20140625
  Transmission Date: 20141212
  Serious: Yes (Other)
  Sender: FDA-Public Use
  Company Number: FR-AMGEN-FRASP2013089534

PATIENT
  Age: 63 Year
  Sex: Male

DRUGS (10)
  1. ENBREL [Suspect]
     Indication: PRODUCT USED FOR UNKNOWN INDICATION
     Dosage: UNK
     Route: 058
     Dates: start: 2008, end: 20131003
  2. BISOPROLOL [Concomitant]
     Dosage: UNK
  3. HEXAQUINE [Concomitant]
     Dosage: UNK
  4. RAMIPRIL [Concomitant]
     Dosage: UNK
  5. TERBUTALINE [Concomitant]
     Dosage: UNK
  6. SIMVASTATIN [Concomitant]
     Dosage: UNK
  7. RANITIDINE [Concomitant]
     Dosage: UNK
  8. SUMATRIPTAN [Concomitant]
     Dosage: UNK
  9. SYMBICORT [Concomitant]
     Dosage: UNK
  10. APRANAX                            /00256202/ [Concomitant]
     Dosage: UNK

REACTIONS (1)
  - Uveitis [Recovered/Resolved]
